FAERS Safety Report 8856877 (Version 1)
Quarter: 2012Q4

REPORT INFORMATION
  Report Type: Spontaneous
  Country: US (occurrence: None)
  Receive Date: 20121023
  Receipt Date: 20121023
  Transmission Date: 20130627
  Serious: Yes (Other)
  Sender: FDA-Public Use
  Company Number: None

PATIENT
  Sex: Male
  Weight: 90.72 kg

DRUGS (1)
  1. OMEPRAZOLE [Suspect]
     Dosage: 8-10  To  8 16
one daily

REACTIONS (2)
  - Eructation [None]
  - Dyspepsia [None]
